FAERS Safety Report 25063738 (Version 1)
Quarter: 2025Q1

REPORT INFORMATION
  Report Type: Spontaneous
  Country: US (occurrence: None)
  Receive Date: 20250310
  Receipt Date: 20250310
  Transmission Date: 20250409
  Serious: No
  Sender: FDA-CTU
  Company Number: None

PATIENT
  Age: 70 Year
  Sex: Male

DRUGS (1)
  1. COLCHICINE [Suspect]
     Active Substance: COLCHICINE
     Indication: Coronary artery disease
     Dosage: FREQUENCY : DAILY;?
     Route: 048
     Dates: start: 20240510, end: 20241101

REACTIONS (2)
  - Confusional state [None]
  - Therapy cessation [None]

NARRATIVE: CASE EVENT DATE: 20241101
